FAERS Safety Report 15758084 (Version 3)
Quarter: 2020Q4

REPORT INFORMATION
  Report Type: Report from Study
  Country: US (occurrence: US)
  Receive Date: 20181225
  Receipt Date: 20201109
  Transmission Date: 20210113
  Serious: Yes (Other)
  Sender: FDA-Public Use
  Company Number: US-BAUSCH-BL-2018-019833

PATIENT
  Age: 67 Year
  Sex: Female
  Weight: 69.46 kg

DRUGS (3)
  1. METFORMIN [Concomitant]
     Active Substance: METFORMIN HYDROCHLORIDE
     Indication: PRODUCT USED FOR UNKNOWN INDICATION
     Dates: start: 2017
  2. CUPRIMINE [Suspect]
     Active Substance: PENICILLAMINE
     Indication: CREST SYNDROME
     Dosage: 1 CAPSULE ONCE DAILY (MORNING)
     Route: 048
     Dates: start: 201708, end: 201708
  3. CUPRIMINE [Suspect]
     Active Substance: PENICILLAMINE
     Indication: PRODUCT USE IN UNAPPROVED INDICATION
     Dosage: 1 CAPSULE 2 TIMES A DAY ON ALTERNATING DAYS
     Route: 048
     Dates: start: 201708, end: 202002

REACTIONS (9)
  - Fatigue [Not Recovered/Not Resolved]
  - Bone pain [Unknown]
  - Blood glucose increased [Unknown]
  - Blood cholesterol increased [Unknown]
  - Epistaxis [Not Recovered/Not Resolved]
  - Insurance issue [Unknown]
  - Weight increased [Unknown]
  - Product use in unapproved indication [Unknown]
  - Therapy interrupted [Unknown]

NARRATIVE: CASE EVENT DATE: 2017
